FAERS Safety Report 19364699 (Version 2)
Quarter: 2021Q2

REPORT INFORMATION
  Report Type: Report from Study
  Country: CA (occurrence: CA)
  Receive Date: 20210602
  Receipt Date: 20210625
  Transmission Date: 20210717
  Serious: Yes (Other)
  Sender: FDA-Public Use
  Company Number: CA-HLS-202107560

PATIENT
  Sex: Female

DRUGS (2)
  1. OLANZAPINE. [Concomitant]
     Active Substance: OLANZAPINE
     Dosage: UNKNOWN
     Route: 065
  2. CLOZARIL [Suspect]
     Active Substance: CLOZAPINE
     Indication: SCHIZOAFFECTIVE DISORDER BIPOLAR TYPE
     Route: 048
     Dates: start: 20110513, end: 20210528

REACTIONS (4)
  - COVID-19 [Unknown]
  - Cough [Unknown]
  - Psychiatric decompensation [Unknown]
  - Leukopenia [Recovered/Resolved]
